FAERS Safety Report 8144539-4 (Version None)
Quarter: 2012Q1

REPORT INFORMATION
  Report Type: 
  Country: None (occurrence: None)
  Receive Date: 20120217
  Receipt Date: 20120207
  Transmission Date: 20120608
  Serious: Yes (Disabling, Other)
  Sender: FDA-Public Use
  Company Number: US-ROCHE-401930

PATIENT
  Sex: Female

DRUGS (6)
  1. CYCLOPHOSPHAMIDE [Suspect]
     Indication: PRODUCT USED FOR UNKNOWN INDICATION
     Dosage: OVER 30 MIN ON DAY 1, EVERY 21 DAYS FOR 4 CYCLES.
     Route: 042
  2. TAMOXIFEN CITRATE [Concomitant]
     Dosage: FOR 5 YEARS.
     Route: 048
  3. HERCEPTIN [Suspect]
     Indication: NEOPLASM MALIGNANT
     Dosage: OVER 30 MIN QW ON DAY 1, FOR 52 WEEKS STARTING ON WEEK 13 (MAINTENANCE DOSE).LAST DOSE PRIOR TO SAE
     Route: 042
  4. DOXORUBICIN HCL [Suspect]
     Indication: NEOPLASM MALIGNANT
     Dosage: ON DAY 1, EVERY 21 DAYS FOR 4 CYCLES.
     Route: 042
  5. HERCEPTIN [Suspect]
     Dosage: LOADING DOSE.
     Route: 042
  6. PACLITAXEL [Suspect]
     Indication: NEOPLASM MALIGNANT
     Dosage: OVER 90 MIN EVERY WEEK ON DAY 1, FOR 12 WEEKS STARTING ON WEEK 13.
     Route: 042

REACTIONS (1)
  - RADIATION SKIN INJURY [None]
